FAERS Safety Report 5341389-9 (Version None)
Quarter: 2007Q2

REPORT INFORMATION
  Report Type: 
  Country: None (occurrence: None)
  Receive Date: 20070404
  Receipt Date: 20061031
  Transmission Date: 20071010
  Serious: Yes (Other)
  Sender: FDA-Public Use
  Company Number: 2006132809

PATIENT
  Age: 35 Year
  Sex: Female

DRUGS (4)
  1. GEODON [Suspect]
  2. CARBAMAZEPINE [Suspect]
  3. LEXAPRO [Suspect]
  4. ALL OTHER THERAPEUTIC PRODUCTS (ALL OTHER THERAPEUTIC PRODUCTS) [Suspect]

REACTIONS (1)
  - TARDIVE DYSKINESIA [None]
